FAERS Safety Report 12658741 (Version 1)
Quarter: 2016Q3

REPORT INFORMATION
  Report Type: Spontaneous
  Country: US (occurrence: None)
  Receive Date: 20160816
  Receipt Date: 20160816
  Transmission Date: 20161109
  Serious: No
  Sender: FDA-Public Use
  Company Number: None

PATIENT
  Age: 44 Year
  Sex: Male
  Weight: 79.38 kg

DRUGS (1)
  1. OXYCODONE/APAP 10/325, 10 MG [Suspect]
     Active Substance: ACETAMINOPHEN\OXYCODONE HYDROCHLORIDE
     Indication: PAIN

REACTIONS (3)
  - Gastritis [None]
  - Drug ineffective [None]
  - Product taste abnormal [None]

NARRATIVE: CASE EVENT DATE: 20160708
